FAERS Safety Report 10770188 (Version 1)
Quarter: 2015Q1

REPORT INFORMATION
  Report Type: Spontaneous
  Country: US (occurrence: None)
  Receive Date: 20150204
  Receipt Date: 20150204
  Transmission Date: 20150721
  Serious: Yes (Death)
  Sender: FDA-Public Use
  Company Number: 2726630

PATIENT
  Age: 38 Year
  Sex: Female

DRUGS (7)
  1. PROMETHAZINE HYDROCHLORIDE. [Suspect]
     Active Substance: PROMETHAZINE HYDROCHLORIDE
     Dates: start: 2013, end: 2013
  2. COCAINE [Suspect]
     Active Substance: COCAINE
     Dates: start: 2013, end: 2013
  3. HYDROCODONE [Suspect]
     Active Substance: HYDROCODONE
     Dates: start: 2013, end: 2013
  4. ACETAMINOPHEN. [Suspect]
     Active Substance: ACETAMINOPHEN
     Dates: start: 2013, end: 2013
  5. (ETHANOL) [Suspect]
     Active Substance: ALCOHOL
     Dates: start: 2013, end: 2013
  6. CYCLOBENZAPRINE [Suspect]
     Active Substance: CYCLOBENZAPRINE
     Dates: start: 2013, end: 2013
  7. DOXYLAMINE [Suspect]
     Active Substance: DOXYLAMINE
     Dates: start: 2013, end: 2013

REACTIONS (2)
  - Drug abuse [None]
  - Poisoning [None]

NARRATIVE: CASE EVENT DATE: 2013
